FAERS Safety Report 17370175 (Version 1)
Quarter: 2020Q1

REPORT INFORMATION
  Report Type: Spontaneous
  Country: CA (occurrence: CA)
  Receive Date: 20200205
  Receipt Date: 20200205
  Transmission Date: 20200409
  Serious: Yes (Other)
  Sender: FDA-Public Use
  Company Number: CA-BTG-202000017

PATIENT
  Sex: Male

DRUGS (1)
  1. VORAXAZE [Suspect]
     Active Substance: GLUCARPIDASE
     Indication: TOXICITY TO VARIOUS AGENTS
     Dosage: FIRST DOSE OF VORAXAZE
     Route: 065
     Dates: start: 20200123

REACTIONS (4)
  - Rebound effect [Unknown]
  - Toxicity to various agents [Unknown]
  - Urine output decreased [Unknown]
  - Renal impairment [Unknown]

NARRATIVE: CASE EVENT DATE: 20200127
